FAERS Safety Report 12807352 (Version 2)
Quarter: 2016Q4

REPORT INFORMATION
  Report Type: Spontaneous
  Country: US (occurrence: US)
  Receive Date: 20161004
  Receipt Date: 20161007
  Transmission Date: 20170207
  Serious: Yes (Hospitalization)
  Sender: FDA-Public Use
  Company Number: US-HORIZON-RAV-0197-2016

PATIENT
  Age: 30 Year
  Sex: Female

DRUGS (1)
  1. RAVICTI [Suspect]
     Active Substance: GLYCEROL PHENYLBUTYRATE
     Indication: UREA CYCLE ENZYME DEFICIENCY
     Dosage: 3.3 ML TID WITH MEALS, INCREASED TO 4.0 ML
     Dates: start: 20150223

REACTIONS (2)
  - Hyperammonaemia [Recovered/Resolved]
  - Pancreatic disorder [Recovered/Resolved]
